FAERS Safety Report 8880903 (Version 1)
Quarter: 2012Q4

REPORT INFORMATION
  Report Type: 
  Country: US (occurrence: US)
  Receive Date: 20121101
  Receipt Date: 20121101
  Transmission Date: 20130627
  Serious: Yes (Hospitalization, Other)
  Sender: FDA-Public Use
  Company Number: US-PFIZER INC-2012214921

PATIENT
  Age: 20 Year
  Sex: Male

DRUGS (4)
  1. DOXEPIN HCL [Suspect]
     Dosage: more than 3 g
  2. LEVETIRACETAM [Suspect]
     Dosage: UNK
  3. CITALOPRAM [Suspect]
     Dosage: 1.2 g
  4. LIPID EMULSION [Suspect]
     Dosage: UNK
     Route: 042

REACTIONS (9)
  - Toxicity to various agents [Recovered/Resolved]
  - Unresponsive to stimuli [Recovered/Resolved]
  - Grand mal convulsion [Recovered/Resolved]
  - Cardiac arrest [Recovered/Resolved]
  - Bradycardia [Recovered/Resolved]
  - Electrocardiogram QRS complex prolonged [Recovered/Resolved]
  - Vomiting [Unknown]
  - Abdominal pain upper [Unknown]
  - Pancreatitis [Unknown]
